FAERS Safety Report 9946141 (Version 1)
Quarter: 2014Q1

REPORT INFORMATION
  Report Type: Spontaneous
  Country: US (occurrence: US)
  Receive Date: 20140303
  Receipt Date: 20140303
  Transmission Date: 20141002
  Serious: No
  Sender: FDA-Public Use
  Company Number: US-AMGEN-USASP2013085316

PATIENT
  Age: 43 Year
  Sex: Male
  Weight: 114.29 kg

DRUGS (13)
  1. ENBREL [Suspect]
     Indication: PRODUCT USED FOR UNKNOWN INDICATION
     Dosage: 50 MG, QWK
     Route: 058
  2. MS CONTIN [Concomitant]
     Dosage: 60 MG, UNK
  3. CELEBREX [Concomitant]
     Dosage: 200 MG, UNK
  4. LYRICA [Concomitant]
     Dosage: 150 MG, UNK
  5. ROBAXIN [Concomitant]
     Dosage: 500 MG, UNK
  6. PROSCAR [Concomitant]
     Dosage: 5 MG, UNK
  7. COUMADIN                           /00014802/ [Concomitant]
     Dosage: 1 MG, UNK
  8. LEXAPRO [Concomitant]
     Dosage: 10 MG, UNK
  9. ASPIRIN BUFFERED [Concomitant]
     Dosage: 325 MG, UNK
  10. VITAMIN D                          /00107901/ [Concomitant]
     Dosage: 1000 UNIT, UNK
  11. PRILOSEC                           /00661201/ [Concomitant]
     Dosage: 10 MG, UNK
  12. LASIX                              /00032601/ [Concomitant]
     Dosage: 20 MG, UNK
  13. POTASSIUM [Concomitant]
     Dosage: 75 MG, UNK

REACTIONS (2)
  - Back pain [Unknown]
  - Acne [Unknown]
